FAERS Safety Report 4945400-6 (Version None)
Quarter: 2006Q1

REPORT INFORMATION
  Report Type: 
  Country: None (occurrence: None)
  Receive Date: 20060316
  Receipt Date: 20041115
  Transmission Date: 20060701
  Serious: Yes (Hospitalization, Disabling)
  Sender: FDA-Public Use
  Company Number: US-ROCHE-386327

PATIENT
  Age: 17 Year
  Sex: Female
  Weight: 74.8 kg

DRUGS (2)
  1. ACCUTANE [Suspect]
     Indication: ACNE
     Route: 048
     Dates: start: 19991115, end: 20000315
  2. ALBUTEROL [Concomitant]
     Indication: ASTHMA

REACTIONS (8)
  - ARTHRITIS [None]
  - BLINDNESS [None]
  - BONE DISORDER [None]
  - INTERVERTEBRAL DISC DEGENERATION [None]
  - KIDNEY INFECTION [None]
  - MUSCULOSKELETAL DISORDER [None]
  - OSTEOCHONDROSIS [None]
  - RENAL DISORDER [None]
